FAERS Safety Report 6257093-9 (Version None)
Quarter: 2009Q3

REPORT INFORMATION
  Report Type: 
  Country: None (occurrence: None)
  Receive Date: 20090706
  Receipt Date: 20090630
  Transmission Date: 20100115
  Serious: Yes (Hospitalization)
  Sender: FDA-Public Use
  Company Number: B0580538A

PATIENT
  Sex: Female
  Weight: 68 kg

DRUGS (2)
  1. LAPATINIB [Suspect]
     Indication: BREAST CANCER
     Route: 048
     Dates: start: 20090114
  2. TRASTUZUMAB [Suspect]
     Indication: BREAST CANCER
     Route: 042
     Dates: start: 20090114

REACTIONS (6)
  - ERYSIPELAS [None]
  - ERYTHEMA [None]
  - PAIN [None]
  - PYREXIA [None]
  - RASH [None]
  - SWELLING FACE [None]
